FAERS Safety Report 4791123-6 (Version None)
Quarter: 2005Q4

REPORT INFORMATION
  Report Type: 
  Country: None (occurrence: None)
  Receive Date: 20051007
  Receipt Date: 20050927
  Transmission Date: 20060501
  Serious: Yes (Hospitalization)
  Sender: FDA-Public Use
  Company Number: FR-BRISTOL-MYERS SQUIBB COMPANY-13125695

PATIENT
  Age: 62 Year
  Sex: Male
  Weight: 91 kg

DRUGS (8)
  1. BRISTOPEN [Suspect]
     Route: 042
     Dates: start: 20050805, end: 20050816
  2. BRISTOPEN CAPS 500 MG [Suspect]
     Route: 048
     Dates: start: 20050816, end: 20050822
  3. PREVISCAN [Concomitant]
     Dosage: DOSAGE ALTERNATING WITH 1/2 TABLET/D FOR INR RANGING FROM 3 TO 4.
  4. CARDENSIEL [Concomitant]
  5. ZESTRIL [Concomitant]
  6. LASILIX [Concomitant]
     Dosage: 40 MG IN THE MORNING AND 20 MG AT LUNCH
  7. ALDACTONE [Concomitant]
  8. CORDARONE [Concomitant]

REACTIONS (3)
  - LEUKOPENIA [None]
  - PANCYTOPENIA [None]
  - THROMBOCYTOPENIA [None]
